FAERS Safety Report 12056929 (Version 2)
Quarter: 2016Q1

REPORT INFORMATION
  Report Type: Spontaneous
  Country: US (occurrence: US)
  Receive Date: 20160209
  Receipt Date: 20160309
  Transmission Date: 20160526
  Serious: Yes (Life-Threatening, Hospitalization, Other)
  Sender: FDA-Public Use
  Company Number: US-GILEAD-2016-0192130

PATIENT
  Age: 66 Year
  Sex: Male
  Weight: 89.79 kg

DRUGS (8)
  1. HARVONI [Suspect]
     Active Substance: LEDIPASVIR\SOFOSBUVIR
     Indication: CHRONIC HEPATITIS C
     Dosage: 1 DF, QD
     Route: 048
     Dates: start: 20151211
  2. LOSARTAN. [Concomitant]
     Active Substance: LOSARTAN
     Indication: PRODUCT USED FOR UNKNOWN INDICATION
     Dosage: UNK UNKNOWN, UNK
     Route: 048
  3. ASPIRIN                            /00002701/ [Concomitant]
     Active Substance: ASPIRIN
     Indication: CARDIAC DISORDER
     Dosage: 8 MG, UNK
     Route: 048
     Dates: start: 20150930
  4. SUCRALFATE. [Concomitant]
     Active Substance: SUCRALFATE
     Indication: GASTROOESOPHAGEAL REFLUX DISEASE
     Dosage: 1 G, BID
     Route: 048
     Dates: start: 20150904
  5. METOPROLOL                         /00376902/ [Concomitant]
     Active Substance: METOPROLOL
     Dosage: 1 UNKNOWN, BID
     Route: 065
  6. ALFUSIN [Concomitant]
     Indication: PRODUCT USED FOR UNKNOWN INDICATION
     Dosage: UNK UNKNOWN, UNK
     Route: 048
  7. TADALAFIL [Concomitant]
     Active Substance: TADALAFIL
     Indication: PRODUCT USED FOR UNKNOWN INDICATION
     Dosage: UNK UNKNOWN, UNK
     Route: 048
  8. HYDROCHLOROTHIAZIDE. [Concomitant]
     Active Substance: HYDROCHLOROTHIAZIDE
     Indication: PRODUCT USED FOR UNKNOWN INDICATION
     Dosage: UNK UNKNOWN, UNK
     Route: 048

REACTIONS (11)
  - Hypoaesthesia [Unknown]
  - Essential hypertension [Unknown]
  - Coronary artery occlusion [Recovered/Resolved with Sequelae]
  - Dyspnoea [Unknown]
  - Coronary artery disease [Unknown]
  - Myocardial infarction [Unknown]
  - Coronary arterial stent insertion [Recovered/Resolved with Sequelae]
  - Anginal equivalent [Unknown]
  - Type IIa hyperlipidaemia [Unknown]
  - Chest discomfort [Recovered/Resolved with Sequelae]
  - Weight increased [Unknown]

NARRATIVE: CASE EVENT DATE: 20151216
